FAERS Safety Report 5232294-7 (Version None)
Quarter: 2007Q1

REPORT INFORMATION
  Report Type: 
  Country: None (occurrence: None)
  Receive Date: 20070205
  Receipt Date: 20061227
  Transmission Date: 20070707
  Serious: Yes (Other)
  Sender: FDA-Public Use
  Company Number: 230001M06TUR

PATIENT
  Age: 48 Year
  Sex: Female
  Weight: 70 kg

DRUGS (1)
  1. REBIF [Suspect]
     Indication: MULTIPLE SCLEROSIS
     Dosage: 3 IN 1 WEEKS, SUBCUTANEOUS
     Route: 058
     Dates: start: 20060225, end: 20061130

REACTIONS (1)
  - THROMBOCYTOPENIA [None]
